FAERS Safety Report 18935242 (Version 1)
Quarter: 2021Q1

REPORT INFORMATION
  Report Type: Spontaneous
  Country: US (occurrence: US)
  Receive Date: 20210224
  Receipt Date: 20210224
  Transmission Date: 20210420
  Serious: No
  Sender: FDA-Public Use
  Company Number: US-TERSERA THERAPEUTICS LLC-2019TRS000588

PATIENT

DRUGS (4)
  1. PRIALT [Suspect]
     Active Substance: ZICONOTIDE ACETATE
     Dosage: 4.486 MCG, QD  (CONCENTRATION 20 MCG/ML, 9% DOSE DECREASE)
     Route: 037
     Dates: start: 20171107
  2. PRIALT [Suspect]
     Active Substance: ZICONOTIDE ACETATE
     Dosage: 1.73233 MCG, QD (CONCENTRATION 20 MCG)
     Route: 037
  3. PRIALT [Suspect]
     Active Substance: ZICONOTIDE ACETATE
     Indication: PRODUCT USED FOR UNKNOWN INDICATION
     Dosage: 4.792 MCG, QD (CONCENTRATION 20 MCG/ML)
     Route: 037
     Dates: start: 20171103
  4. PRIALT [Suspect]
     Active Substance: ZICONOTIDE ACETATE
     Dosage: 3.46466 MCG, QD (CONCENTRATION 20 MCG)
     Route: 037
     Dates: start: 20190109

REACTIONS (7)
  - Arthralgia [Recovered/Resolved]
  - Confusional state [Recovered/Resolved]
  - Fatigue [Not Recovered/Not Resolved]
  - Headache [Recovered/Resolved]
  - Illusion [Recovered/Resolved]
  - Memory impairment [Recovered/Resolved]
  - Dry mouth [Recovered/Resolved]

NARRATIVE: CASE EVENT DATE: 20190307
